FAERS Safety Report 17588023 (Version 1)
Quarter: 2020Q1

REPORT INFORMATION
  Report Type: Report from Study
  Country: None (occurrence: US)
  Receive Date: 20200327
  Receipt Date: 20200327
  Transmission Date: 20200409
  Serious: Yes (Other)
  Sender: FDA-Public Use
  Company Number: US-ABBVIE-20K-163-3324699-00

PATIENT
  Sex: Male

DRUGS (2)
  1. VENCLEXTA [Suspect]
     Active Substance: VENETOCLAX
     Indication: SOFT TISSUE SARCOMA
  2. VENCLEXTA [Suspect]
     Active Substance: VENETOCLAX
     Indication: MALIGNANT CONNECTIVE TISSUE NEOPLASM
     Route: 048

REACTIONS (3)
  - Soft tissue sarcoma [Unknown]
  - Malignant connective tissue neoplasm [Unknown]
  - Off label use [Unknown]
